FAERS Safety Report 18567531 (Version 10)
Quarter: 2022Q2

REPORT INFORMATION
  Report Type: Spontaneous
  Country: DE (occurrence: DE)
  Receive Date: 20201202
  Receipt Date: 20220507
  Transmission Date: 20220720
  Serious: Yes (Life-Threatening, Hospitalization, Other)
  Sender: FDA-Public Use
  Company Number: DE-002147023-NVSC2020DE297876

PATIENT
  Age: 41 Year
  Sex: Female
  Weight: 100 kg

DRUGS (103)
  1. ASPIRIN [Suspect]
     Active Substance: ASPIRIN
     Indication: Product used for unknown indication
     Dosage: UNK
     Route: 065
  2. DICLOFENAC [Suspect]
     Active Substance: DICLOFENAC
     Indication: Product used for unknown indication
     Dosage: UNK
     Route: 065
  3. DOXORUBICIN [Suspect]
     Active Substance: DOXORUBICIN
     Indication: Hodgkin^s disease
     Dosage: 25 MG/M2 (DAY 1 AND DAY 15)
     Route: 065
     Dates: start: 20151027, end: 201512
  4. DOXORUBICIN [Suspect]
     Active Substance: DOXORUBICIN
     Dosage: 25 MG/M2 (DAY 1)
     Route: 065
     Dates: start: 20160113
  5. IBUPROFEN [Suspect]
     Active Substance: IBUPROFEN
     Indication: Product used for unknown indication
     Dosage: UNK
     Route: 065
  6. VALSARTAN AND HYDROCHLOROTHIAZIDE [Suspect]
     Active Substance: HYDROCHLOROTHIAZIDE\VALSARTAN
     Indication: Hypertension
     Dosage: 80 MILLIGRAM
     Route: 065
     Dates: start: 20140707
  7. VALSARTAN AND HYDROCHLOROTHIAZIDE [Suspect]
     Active Substance: HYDROCHLOROTHIAZIDE\VALSARTAN
     Dosage: UNK
     Route: 065
     Dates: start: 20150611
  8. VALSARTAN AND HYDROCHLOROTHIAZIDE [Suspect]
     Active Substance: HYDROCHLOROTHIAZIDE\VALSARTAN
     Dosage: 16/12.5 MG
     Route: 065
     Dates: start: 201407, end: 201807
  9. VALSARTAN [Suspect]
     Active Substance: VALSARTAN
     Indication: Hypertension
     Dosage: UNK
     Route: 065
     Dates: start: 20130124
  10. VALSARTAN [Suspect]
     Active Substance: VALSARTAN
     Dosage: UNK, 160/12.5
     Route: 065
     Dates: start: 201407, end: 201410
  11. VALSARTAN [Suspect]
     Active Substance: VALSARTAN
     Dosage: UNK, 80
     Route: 065
     Dates: start: 201407, end: 201410
  12. VALSARTAN [Suspect]
     Active Substance: VALSARTAN
     Dosage: 80 MILLIGRAM
     Route: 065
     Dates: start: 20140707
  13. VALSARTAN [Suspect]
     Active Substance: VALSARTAN
     Dosage: UNK
     Route: 065
     Dates: start: 20150102
  14. VALSARTAN [Suspect]
     Active Substance: VALSARTAN
     Dosage: UNK
     Route: 065
     Dates: start: 20160804
  15. VALSARTAN [Suspect]
     Active Substance: VALSARTAN
     Dosage: UNK
     Route: 065
     Dates: start: 20150415
  16. VALSARTAN [Suspect]
     Active Substance: VALSARTAN
     Dosage: UNK
     Route: 065
     Dates: start: 20150611
  17. VALSARTAN [Suspect]
     Active Substance: VALSARTAN
     Dosage: UNK
     Route: 065
     Dates: start: 20160424
  18. ACETAMINOPHEN [Suspect]
     Active Substance: ACETAMINOPHEN
     Indication: Product used for unknown indication
     Dosage: UNK
     Route: 065
  19. BACLOFEN [Suspect]
     Active Substance: BACLOFEN
     Indication: Product used for unknown indication
     Dosage: 200 MICROGRAM, VIA PUMP
     Route: 058
  20. BACLOFEN [Suspect]
     Active Substance: BACLOFEN
     Dosage: 200 UG/20 MG VIA PUMP (1-1-1)
     Route: 058
  21. BLEOMYCIN [Suspect]
     Active Substance: BLEOMYCIN SULFATE
     Indication: Hodgkin^s disease
     Dosage: 25 MILLIGRAM/SQ. METER
     Route: 065
     Dates: start: 20151027, end: 201512
  22. BLEOMYCIN [Suspect]
     Active Substance: BLEOMYCIN SULFATE
     Dosage: 10 MILLIGRAM/SQ. METER
     Route: 065
     Dates: start: 20160120
  23. DOXIL [Suspect]
     Active Substance: DOXORUBICIN HYDROCHLORIDE
     Indication: Hodgkin^s disease
     Dosage: 25 MILLIGRAM/SQ. METER, DAY 1 AND 15 (25 MG/M2)
     Route: 065
     Dates: start: 20151027, end: 201512
  24. DOXIL [Suspect]
     Active Substance: DOXORUBICIN HYDROCHLORIDE
     Dosage: UNK, DAY 1
     Route: 065
     Dates: start: 20160113
  25. CYCLOPHOSPHAMIDE [Suspect]
     Active Substance: CYCLOPHOSPHAMIDE
     Indication: Hodgkin^s disease
     Dosage: 750 MILLIGRAM/SQ. METER
     Route: 065
     Dates: start: 20160113
  26. DACARBAZINE [Suspect]
     Active Substance: DACARBAZINE
     Indication: Hodgkin^s disease
     Dosage: 375 MILLIGRAM/SQ. METER (DAY 1 AND DAY 15)
     Route: 065
     Dates: start: 20151027, end: 201512
  27. DIAZEPAM [Suspect]
     Active Substance: DIAZEPAM
     Indication: Pain in extremity
     Dosage: 10 MILLIGRAM
     Route: 065
     Dates: start: 20150608
  28. DIAZEPAM [Suspect]
     Active Substance: DIAZEPAM
     Indication: Back pain
  29. PIRITRAMIDE [Suspect]
     Active Substance: PIRITRAMIDE
     Indication: Pain in extremity
     Dosage: 15 MILLIGRAM
     Route: 058
     Dates: start: 20150608
  30. PIRITRAMIDE [Suspect]
     Active Substance: PIRITRAMIDE
     Indication: Back pain
  31. ETOPOSIDE [Suspect]
     Active Substance: ETOPOSIDE
     Indication: Hodgkin^s disease
     Dosage: 100 MILLIGRAM/SQ. METER
     Route: 065
     Dates: start: 20160113
  32. LENOGRASTIM [Suspect]
     Active Substance: LENOGRASTIM
     Indication: Neutropenia
     Dosage: UNK
     Route: 065
     Dates: start: 201511, end: 201511
  33. LENOGRASTIM [Suspect]
     Active Substance: LENOGRASTIM
     Dosage: UNK UNK, ONCE A DAY (1X 34, QD, 1X DAILY.)
     Route: 065
     Dates: start: 20160203, end: 20160205
  34. LENOGRASTIM [Suspect]
     Active Substance: LENOGRASTIM
     Dosage: UNK, ONCE A DAY (1X 34, QD, 1X DAILY.)
     Route: 065
     Dates: start: 20160120, end: 201601
  35. PREDNISOLONE [Suspect]
     Active Substance: PREDNISOLONE
     Indication: Hodgkin^s disease
     Dosage: 40 MILLIGRAM (40 MG MG/M2 (80 MG), DAY 1 ? 14, DAILY )
     Route: 065
     Dates: start: 20160113, end: 20160126
  36. PROCARBAZINE [Suspect]
     Active Substance: PROCARBAZINE
     Indication: Hodgkin^s disease
     Dosage: 100 MILLIGRAM/SQ. METER
     Route: 065
     Dates: start: 20190113, end: 20190119
  37. NEULASTA [Suspect]
     Active Substance: PEGFILGRASTIM
     Indication: Neutropenia
     Dosage: UNK
     Route: 058
     Dates: start: 20151212, end: 20151212
  38. HYDROCHLOROTHIAZIDE\VALSARTAN [Suspect]
     Active Substance: HYDROCHLOROTHIAZIDE\VALSARTAN
     Indication: Hypertension
     Dosage: 1 DOSAGE FORM, ONCE A DAY
     Route: 065
     Dates: start: 201407, end: 201407
  39. HYDROCHLOROTHIAZIDE\VALSARTAN [Suspect]
     Active Substance: HYDROCHLOROTHIAZIDE\VALSARTAN
     Dosage: UNK
     Route: 065
     Dates: start: 20140707
  40. HYDROCHLOROTHIAZIDE\VALSARTAN [Suspect]
     Active Substance: HYDROCHLOROTHIAZIDE\VALSARTAN
     Dosage: 1 DOSAGE FORM
     Route: 065
     Dates: start: 20141014
  41. HYDROCHLOROTHIAZIDE\VALSARTAN [Suspect]
     Active Substance: HYDROCHLOROTHIAZIDE\VALSARTAN
     Dosage: UNK
     Route: 065
     Dates: start: 201410
  42. HYDROCHLOROTHIAZIDE\VALSARTAN [Suspect]
     Active Substance: HYDROCHLOROTHIAZIDE\VALSARTAN
     Dosage: UNK
     Route: 065
     Dates: start: 20150102
  43. HYDROCHLOROTHIAZIDE\VALSARTAN [Suspect]
     Active Substance: HYDROCHLOROTHIAZIDE\VALSARTAN
     Dosage: UNK
     Route: 065
     Dates: start: 20150415
  44. HYDROCHLOROTHIAZIDE\VALSARTAN [Suspect]
     Active Substance: HYDROCHLOROTHIAZIDE\VALSARTAN
     Dosage: UNK
     Route: 065
     Dates: start: 20150611
  45. HYDROCHLOROTHIAZIDE\VALSARTAN [Suspect]
     Active Substance: HYDROCHLOROTHIAZIDE\VALSARTAN
     Dosage: UNK
     Route: 065
     Dates: start: 20160427
  46. HYDROCHLOROTHIAZIDE\VALSARTAN [Suspect]
     Active Substance: HYDROCHLOROTHIAZIDE\VALSARTAN
     Dosage: UNK
     Route: 065
     Dates: start: 20160804
  47. HYDROCHLOROTHIAZIDE\VALSARTAN [Suspect]
     Active Substance: HYDROCHLOROTHIAZIDE\VALSARTAN
     Dosage: UNK
     Route: 065
     Dates: start: 20170112
  48. HYDROCHLOROTHIAZIDE\VALSARTAN [Suspect]
     Active Substance: HYDROCHLOROTHIAZIDE\VALSARTAN
     Dosage: UNK
     Route: 065
     Dates: start: 20170411
  49. HYDROCHLOROTHIAZIDE\VALSARTAN [Suspect]
     Active Substance: HYDROCHLOROTHIAZIDE\VALSARTAN
     Dosage: UNK
     Route: 065
     Dates: start: 201704
  50. HYDROCHLOROTHIAZIDE\VALSARTAN [Suspect]
     Active Substance: HYDROCHLOROTHIAZIDE\VALSARTAN
     Dosage: UNK
     Route: 065
     Dates: start: 20170725
  51. VALSARTAN [Suspect]
     Active Substance: VALSARTAN
     Indication: Hypertension
     Dosage: 160/ 12.5 MG
     Route: 065
     Dates: start: 201407
  52. VALSARTAN [Suspect]
     Active Substance: VALSARTAN
     Dosage: 80 MILLIGRAM
     Route: 065
     Dates: start: 20140707
  53. VALSARTAN [Suspect]
     Active Substance: VALSARTAN
     Dosage: 80 MILLIGRAM
     Route: 065
     Dates: start: 201407
  54. VALSARTAN [Suspect]
     Active Substance: VALSARTAN
     Dosage: UNK
     Route: 065
     Dates: start: 20141014
  55. VALSARTAN [Suspect]
     Active Substance: VALSARTAN
     Dosage: UNK
     Route: 065
     Dates: start: 201410, end: 201410
  56. VALSARTAN [Suspect]
     Active Substance: VALSARTAN
     Dosage: UNK
     Route: 065
     Dates: start: 20150102
  57. VALSARTAN [Suspect]
     Active Substance: VALSARTAN
     Dosage: UNK
     Route: 065
     Dates: start: 20150415
  58. VALSARTAN [Suspect]
     Active Substance: VALSARTAN
     Dosage: UNK
     Route: 065
     Dates: start: 20150611
  59. VALSARTAN [Suspect]
     Active Substance: VALSARTAN
     Dosage: UNK
     Route: 065
     Dates: start: 20160427
  60. VALSARTAN [Suspect]
     Active Substance: VALSARTAN
     Dosage: UNK
     Route: 065
     Dates: start: 20160804
  61. VALSARTAN [Suspect]
     Active Substance: VALSARTAN
     Dosage: UNK
     Route: 065
     Dates: start: 201410, end: 201704
  62. VINBLASTINE [Suspect]
     Active Substance: VINBLASTINE
     Indication: Hodgkin^s disease
     Dosage: 6 MILLIGRAM/SQ. METER  (DAY 1 AND DAY 15)
     Route: 065
     Dates: start: 20151027, end: 201512
  63. VINCRISTINE [Suspect]
     Active Substance: VINCRISTINE
     Indication: Hodgkin^s disease
     Dosage: 2 MILLIGRAM ABSOLUTE, DAY 8
     Route: 065
     Dates: start: 20160120
  64. BACLOFEN [Concomitant]
     Active Substance: BACLOFEN
     Indication: Product used for unknown indication
     Dosage: UNK (25/20 MG IN MORNING, 20 MG IN NOON, 20 MG IN THE EVENING
     Route: 065
  65. BACLOFEN [Concomitant]
     Active Substance: BACLOFEN
     Dosage: 80 MICROGRAM, ONCE A DAY
     Route: 065
     Dates: start: 2015
  66. BACLOFEN [Concomitant]
     Active Substance: BACLOFEN
     Dosage: 80 UG, QD, VIA PUMP
     Route: 065
     Dates: end: 2015
  67. BACLOFEN [Concomitant]
     Active Substance: BACLOFEN
     Dosage: 50 MICROGRAM, ONCE A DAY
     Route: 065
     Dates: start: 2015, end: 2015
  68. BACLOFEN [Concomitant]
     Active Substance: BACLOFEN
     Dosage: UNK
     Route: 048
     Dates: start: 20170704, end: 20170712
  69. BACLOFEN [Concomitant]
     Active Substance: BACLOFEN
     Dosage: 25 MILLIGRAM,25 MG (1-1-1-1 ONCE IN MORNING, NOON, AFTERNOON, EVENING)
     Route: 048
     Dates: start: 20180102
  70. BACLOFEN [Concomitant]
     Active Substance: BACLOFEN
     Dosage: UNK (125 UG/24 HOURS 2000 UG/ML VIA PUMP)
     Route: 065
     Dates: start: 20180228
  71. BACLOFEN [Concomitant]
     Active Substance: BACLOFEN
     Dosage: 200 UG/20 MG VIA PUMP 200 MCG UNK
     Route: 058
  72. CITALOPRAM [Concomitant]
     Active Substance: CITALOPRAM HYDROBROMIDE
     Indication: Product used for unknown indication
     Dosage: 1X 20, 1X DAILY (MORNING)
     Route: 065
  73. ENOXAPARIN SODIUM [Concomitant]
     Active Substance: ENOXAPARIN SODIUM
     Indication: Thrombosis prophylaxis
     Dosage: 40 MILLIGRAM, ONCE A DAY
     Route: 058
  74. CLONIDINE [Concomitant]
     Active Substance: CLONIDINE
     Indication: Product used for unknown indication
     Dosage: UNK UNK, ONCE A DAY,BID (1X0.5 MG)
     Route: 065
  75. CLONIDINE [Concomitant]
     Active Substance: CLONIDINE
     Dosage: 0.15 MICROGRAM, TWO TIMES A DAY,(1-0-1 IN MORNINGA AND EVENING)
     Route: 065
  76. SULFAMETHOXAZOLE\TRIMETHOPRIM [Concomitant]
     Active Substance: SULFAMETHOXAZOLE\TRIMETHOPRIM
     Indication: Pneumonia
     Dosage: 2 DOSAGE FORM, ONCE A DAY
     Route: 065
  77. MORPHINE [Concomitant]
     Active Substance: MORPHINE
     Indication: Pain
     Dosage: UNK, VIA PUMP
     Route: 065
  78. DIAZEPAM [Concomitant]
     Active Substance: DIAZEPAM
     Indication: Product used for unknown indication
     Dosage: 10 MILLIGRAM (10 MG1X 2.5, QD, 1X DAILY (EVENING)10 MG1X 2.5, QD, 1X DAILY (MORNING)
     Route: 065
  79. DIAZEPAM [Concomitant]
     Active Substance: DIAZEPAM
     Dosage: UNK, ONCE A DAY,1X 2.5, QD, 1X DAILY (MORNING)
     Route: 065
  80. LEVOTHYROXINE [Concomitant]
     Active Substance: LEVOTHYROXINE
     Indication: Product used for unknown indication
     Dosage: UNK
     Route: 065
  81. LYRICA [Concomitant]
     Active Substance: PREGABALIN
     Indication: Product used for unknown indication
     Dosage: 1X 150, 2X DAILY (MORNING AND EVENING)
     Route: 065
  82. LYRICA [Concomitant]
     Active Substance: PREGABALIN
     Dosage: 1X 75, 1X DAILY (EVENING), START DATE: ?? FEB/MAR 2016
     Route: 065
     Dates: start: 2016
  83. LYRICA [Concomitant]
     Active Substance: PREGABALIN
     Dosage: 2X 75, 1X DAILY (MORNING), START DATE: ?? FEB/MAR 2016
     Route: 065
     Dates: start: 2016
  84. LYRICA [Concomitant]
     Active Substance: PREGABALIN
     Dosage: 1X 150, 1X, STOP DATE: ?? FEB/MAR 2016
     Route: 065
     Dates: start: 2016
  85. MOTILIUM [Concomitant]
     Active Substance: DOMPERIDONE
     Indication: Product used for unknown indication
     Dosage: 1 DF,SACHET, 4X DAILY
     Route: 065
  86. MOTILIUM [Concomitant]
     Active Substance: DOMPERIDONE
     Dosage: 10 MILLIGRAM
     Route: 048
  87. MOVICOL [Concomitant]
     Active Substance: POLYETHYLENE GLYCOL 3350\POTASSIUM CHLORIDE\SODIUM BICARBONATE\SODIUM CHLORIDE
     Indication: Product used for unknown indication
     Dosage: UNK, SACHET, 1X DAILY (MORNING)
     Route: 065
  88. MOVICOL [Concomitant]
     Active Substance: POLYETHYLENE GLYCOL 3350\POTASSIUM CHLORIDE\SODIUM BICARBONATE\SODIUM CHLORIDE
     Dosage: 1 DOSAGE FORM, SACHET, 1X IF NEEDED
     Route: 065
  89. PANTOZOL [Concomitant]
     Active Substance: PANTOPRAZOLE SODIUM
     Indication: Product used for unknown indication
     Dosage: 1X 40, 1X DAILY (EVENING)
     Route: 065
  90. PANTOZOL [Concomitant]
     Active Substance: PANTOPRAZOLE SODIUM
     Dosage: 1X 40, 1X DAILY (MORNING)
     Route: 065
  91. PANTOZOL [Concomitant]
     Active Substance: PANTOPRAZOLE SODIUM
     Dosage: 40 MILLIGRAM, ONCE A DAY
     Route: 065
  92. HYDROMORPHONE [Concomitant]
     Active Substance: HYDROMORPHONE
     Indication: Product used for unknown indication
     Dosage: 8 MILLIGRAM, TWO TIMES A DAY (1X 8MG, BID)
     Route: 065
     Dates: start: 201511, end: 201511
  93. VALSARTAN [Concomitant]
     Active Substance: VALSARTAN
     Indication: Hypertension
     Dosage: UNK,160 MG / 12.5 MG
     Route: 065
     Dates: start: 201301
  94. VALSARTAN [Concomitant]
     Active Substance: VALSARTAN
     Dosage: UNK
     Route: 065
     Dates: start: 20130124
  95. HYDROCHLOROTHIAZIDE\VALSARTAN [Concomitant]
     Active Substance: HYDROCHLOROTHIAZIDE\VALSARTAN
     Indication: Hypertension
     Dosage: UNK
     Route: 065
     Dates: start: 20170725
  96. HYDROCHLOROTHIAZIDE\VALSARTAN [Concomitant]
     Active Substance: HYDROCHLOROTHIAZIDE\VALSARTAN
     Dosage: UNK
     Route: 065
     Dates: start: 20170411
  97. HYDROCHLOROTHIAZIDE\VALSARTAN [Concomitant]
     Active Substance: HYDROCHLOROTHIAZIDE\VALSARTAN
     Dosage: UNK
     Route: 065
     Dates: start: 201704
  98. CHOLECALCIFEROL [Concomitant]
     Active Substance: CHOLECALCIFEROL
     Indication: Product used for unknown indication
     Dosage: 100 MILLIGRAM (IN THE MORNING)
     Route: 048
  99. CLORAZEPATE DIPOTASSIUM [Concomitant]
     Active Substance: CLORAZEPATE DIPOTASSIUM
     Indication: Product used for unknown indication
     Dosage: 10 MILLIGRAM, ONCE A DAY (MORNING)
     Route: 065
  100. CLORAZEPATE DIPOTASSIUM [Concomitant]
     Active Substance: CLORAZEPATE DIPOTASSIUM
     Dosage: 20 MILLIGRAM, ONCE A DAY (1X 10 MG, BID, 2X DAILY (MORNING AND EVENING))
     Route: 065
  101. CLORAZEPATE DIPOTASSIUM [Concomitant]
     Active Substance: CLORAZEPATE DIPOTASSIUM
     Dosage: 15 MILLIGRAM, ONCE A DAY (EVENING OR NIGHT)
     Route: 065
  102. CLORAZEPATE DIPOTASSIUM [Concomitant]
     Active Substance: CLORAZEPATE DIPOTASSIUM
     Dosage: 40 MILLIGRAM, ONCE A DAY(10 MG, BID (1X 10 MG, BID, 2X DAILY (MORNING AND EVENING) )
  103. SULFAMETHOXAZOLE\TRIMETHOPRIM [Concomitant]
     Active Substance: SULFAMETHOXAZOLE\TRIMETHOPRIM
     Indication: Pneumonia
     Dosage: 2 DOSAGE FORM, ONCE A DAY (1 DF, BID (1 DF, BID, DF (ON (SATURDAY AND SUNDAY))
     Route: 065

REACTIONS (69)
  - Hodgkin^s disease [Unknown]
  - Red blood cell sedimentation rate increased [Unknown]
  - Pain [Recovering/Resolving]
  - Basal ganglion degeneration [Unknown]
  - Candida infection [Unknown]
  - Klebsiella infection [Unknown]
  - Headache [Unknown]
  - Lymphadenopathy [Recovering/Resolving]
  - Neutropenia [Recovering/Resolving]
  - Dyspnoea [Recovering/Resolving]
  - Pain in extremity [Recovering/Resolving]
  - Viral infection [Recovered/Resolved]
  - Back pain [Recovering/Resolving]
  - Nausea [Recovering/Resolving]
  - Dysphagia [Unknown]
  - Splenomegaly [Unknown]
  - Pulmonary congestion [Unknown]
  - Pneumonia [Unknown]
  - Spinal pain [Unknown]
  - Bone pain [Recovering/Resolving]
  - Tissue infiltration [Unknown]
  - General physical health deterioration [Unknown]
  - Urinary tract infection [Unknown]
  - Pyrexia [Recovered/Resolved]
  - Vomiting [Recovering/Resolving]
  - Hyperpyrexia [Unknown]
  - Somnolence [Recovering/Resolving]
  - Intervertebral disc disorder [Unknown]
  - Hypothyroidism [Unknown]
  - Cough [Unknown]
  - Drug abuse [Unknown]
  - Sepsis [Unknown]
  - Haematoma [Unknown]
  - Hypokinesia [Not Recovered/Not Resolved]
  - Monoplegia [Unknown]
  - Respiratory failure [Unknown]
  - Muscle spasticity [Unknown]
  - Tenderness [Unknown]
  - Inflammation [Recovering/Resolving]
  - Psychogenic seizure [Unknown]
  - Fatigue [Unknown]
  - Loss of consciousness [Unknown]
  - Device malfunction [Unknown]
  - Tremor [Unknown]
  - Speech disorder [Recovering/Resolving]
  - Neurological decompensation [Recovering/Resolving]
  - Inguinal hernia [Unknown]
  - Dizziness [Unknown]
  - Lung disorder [Unknown]
  - Hyperventilation [Unknown]
  - Hepatic steatosis [Unknown]
  - Fall [Recovered/Resolved]
  - Hyperhidrosis [Unknown]
  - Renal cyst [Unknown]
  - Uterine enlargement [Unknown]
  - Drug hypersensitivity [Unknown]
  - Sleep disorder [Unknown]
  - Myalgia [Unknown]
  - Obesity [Unknown]
  - Hypochromic anaemia [Unknown]
  - Tachycardia [Unknown]
  - Sleep apnoea syndrome [Unknown]
  - Arthralgia [Unknown]
  - Dysaesthesia [Recovering/Resolving]
  - Abdominal tenderness [Unknown]
  - Hypoaesthesia [Recovering/Resolving]
  - Anaesthesia [Recovering/Resolving]
  - Anaphylactic reaction [Unknown]
  - Drug intolerance [Unknown]

NARRATIVE: CASE EVENT DATE: 20140101
